FAERS Safety Report 6216316-2 (Version None)
Quarter: 2009Q2

REPORT INFORMATION
  Report Type: 
  Country: None (occurrence: None)
  Receive Date: 20090605
  Receipt Date: 20090525
  Transmission Date: 20091009
  Serious: Yes (Hospitalization, Other)
  Sender: FDA-Public Use
  Company Number: CA-JNJFOC-20090203981

PATIENT
  Sex: Male
  Weight: 59.1 kg

DRUGS (1)
  1. REMICADE [Suspect]
     Indication: ANKYLOSING SPONDYLITIS
     Route: 042

REACTIONS (10)
  - ABDOMINAL PAIN UPPER [None]
  - AGITATED DEPRESSION [None]
  - CONCUSSION [None]
  - CONVULSION [None]
  - DIARRHOEA [None]
  - FAILURE TO THRIVE [None]
  - FALL [None]
  - MALAISE [None]
  - NAUSEA [None]
  - VOMITING [None]
